FAERS Safety Report 9858148 (Version 1)
Quarter: 2014Q1

REPORT INFORMATION
  Report Type: Spontaneous
  Country: US (occurrence: None)
  Receive Date: 20140129
  Receipt Date: 20140129
  Transmission Date: 20141002
  Serious: Yes (Life-Threatening)
  Sender: FDA-Public Use
  Company Number: None

PATIENT
  Age: 62 Year
  Sex: Female
  Weight: 65.77 kg

DRUGS (7)
  1. HEPARIN [Suspect]
     Indication: PERIPHERAL VASCULAR DISORDER
     Dosage: INFUSION
     Route: 042
     Dates: start: 20121202, end: 201308
  2. ALTEPLASE [Suspect]
     Indication: PERIPHERAL VASCULAR DISORDER
     Route: 042
     Dates: start: 20121202, end: 201303
  3. CARVEDILOL [Concomitant]
  4. SODIUM CHLORIDE [Concomitant]
  5. FENTANYL [Concomitant]
  6. ONDANSETRON [Concomitant]
  7. CLONIDINE [Concomitant]

REACTIONS (1)
  - Haemorrhage [None]
